FAERS Safety Report 7533154-9 (Version None)
Quarter: 2011Q2

REPORT INFORMATION
  Report Type: 
  Country: None (occurrence: None)
  Receive Date: 20110608
  Receipt Date: 20020925
  Transmission Date: 20111010
  Serious: Yes (Life-Threatening)
  Sender: FDA-Public Use
  Company Number: PHBS2002CA09418

PATIENT
  Sex: Male

DRUGS (6)
  1. CLONAZEPAM [Concomitant]
     Dosage: 0.5 MG, BID
     Route: 065
  2. CLONAZEPAM [Concomitant]
     Dosage: 1 MG, QHS
     Route: 065
  3. RANITIDINE [Concomitant]
     Route: 065
  4. CLOZAPINE [Suspect]
     Indication: PSYCHOTIC DISORDER
     Route: 048
     Dates: start: 20011127, end: 20020807
  5. CIMETIDINE [Suspect]
     Dates: start: 20010401
  6. NEUPOGEN [Concomitant]
     Route: 065
     Dates: end: 20020818

REACTIONS (3)
  - SYSTEMIC LUPUS ERYTHEMATOSUS [None]
  - WHITE BLOOD CELL COUNT DECREASED [None]
  - AGRANULOCYTOSIS [None]
